FAERS Safety Report 5651620-8 (Version None)
Quarter: 2008Q1

REPORT INFORMATION
  Report Type: 
  Country: None (occurrence: None)
  Receive Date: 20080305
  Receipt Date: 20080227
  Transmission Date: 20080703
  Serious: Yes (Death, Life-Threatening)
  Sender: FDA-Public Use
  Company Number: CZ-AVENTIS-200810934EU

PATIENT
  Age: 80 Year
  Sex: Female

DRUGS (8)
  1. CLEXANE [Suspect]
     Route: 058
     Dates: start: 20080121, end: 20080130
  2. BETALOC ZOK [Concomitant]
     Route: 048
  3. FURON                              /00032601/ [Concomitant]
     Route: 048
  4. DIGOXIN LECIVA [Concomitant]
     Dosage: DOSE QUANTITY: 0.125
     Route: 048
  5. GERATAM [Concomitant]
     Route: 048
  6. CIPROFLOXACINUM [Concomitant]
     Route: 042
  7. AUGMENTIN '125' [Concomitant]
     Route: 048
  8. WARFARIN SODIUM [Concomitant]
     Route: 048
     Dates: end: 20080130

REACTIONS (3)
  - CARDIAC FAILURE [None]
  - RETROPERITONEAL HAEMORRHAGE [None]
  - SHOCK [None]
